FAERS Safety Report 6752418-X (Version None)
Quarter: 2010Q2

REPORT INFORMATION
  Report Type: 
  Country: None (occurrence: None)
  Receive Date: 20100602
  Receipt Date: 20100525
  Transmission Date: 20101027
  Serious: Yes (Other)
  Sender: FDA-Public Use
  Company Number: US-WYE-H14632010

PATIENT
  Sex: Female
  Weight: 45.4 kg

DRUGS (14)
  1. PREMPRO [Suspect]
     Indication: HORMONE REPLACEMENT THERAPY
     Dosage: 0.45/1.5MG SAMPLES DAILY
     Route: 048
     Dates: start: 20100101, end: 20100201
  2. PREMPRO [Suspect]
     Indication: EMOTIONAL DISORDER
     Dosage: TWO 0.625/2.5MG TABLETS DAILY
     Route: 048
     Dates: start: 20100201
  3. ESTRADIOL [Suspect]
     Indication: HORMONE REPLACEMENT THERAPY
     Dosage: UNKNOWN
     Route: 065
  4. ESTRADIOL [Suspect]
     Indication: EMOTIONAL DISORDER
  5. PHENERGAN ^RHONE-POULENC^ [Concomitant]
     Indication: NAUSEA
     Dosage: UNKNOWN
     Route: 065
  6. MORPHINE [Concomitant]
     Indication: MYALGIA
     Dosage: UNKNOWN
     Route: 065
  7. MORPHINE [Concomitant]
     Indication: MUSCLE SPASMS
  8. VALIUM [Concomitant]
     Indication: MYALGIA
     Dosage: UNKNOWN
     Route: 065
  9. VALIUM [Concomitant]
     Indication: MUSCLE SPASMS
  10. DULCOLAX [Concomitant]
     Indication: CONSTIPATION
     Dosage: UNKNOWN
     Route: 065
  11. PREMARIN [Suspect]
     Indication: HORMONE REPLACEMENT THERAPY
     Route: 048
     Dates: start: 20090101, end: 20090101
  12. PREMARIN [Suspect]
     Indication: EMOTIONAL DISORDER
  13. ESTROPIPATE [Suspect]
     Indication: HORMONE REPLACEMENT THERAPY
     Dosage: UNKNOWN
     Route: 065
  14. ESTROPIPATE [Suspect]
     Indication: EMOTIONAL DISORDER

REACTIONS (6)
  - AFFECT LABILITY [None]
  - DRUG INEFFECTIVE [None]
  - EMOTIONAL DISORDER [None]
  - RASH ERYTHEMATOUS [None]
  - RASH PRURITIC [None]
  - WEIGHT DECREASED [None]
